FAERS Safety Report 8995424 (Version 1)
Quarter: 2013Q1

REPORT INFORMATION
  Report Type: Spontaneous
  Country: US (occurrence: US)
  Receive Date: 20130103
  Receipt Date: 20130103
  Transmission Date: 20140127
  Serious: No
  Sender: FDA-Public Use
  Company Number: US-ABBOTT-12P-163-0917006-00

PATIENT
  Sex: Female
  Weight: 48.58 kg

DRUGS (7)
  1. SYNTHROID [Suspect]
     Indication: HYPOTHYROIDISM
     Route: 048
     Dates: start: 201112
  2. TARCEVA [Concomitant]
     Indication: LUNG NEOPLASM MALIGNANT
  3. LIPITOR [Concomitant]
     Indication: BLOOD CHOLESTEROL
  4. UNKNOWN EYE DROPS [Concomitant]
     Indication: GLAUCOMA
  5. CITRACAL [Concomitant]
     Indication: MINERAL SUPPLEMENTATION
  6. CENTRUM SILVER [Concomitant]
     Indication: SUPPLEMENTATION THERAPY
  7. VITAMIN C [Concomitant]
     Indication: VITAMIN SUPPLEMENTATION

REACTIONS (2)
  - Nail growth abnormal [Not Recovered/Not Resolved]
  - Hair growth abnormal [Recovering/Resolving]
